FAERS Safety Report 24547545 (Version 2)
Quarter: 2025Q3

REPORT INFORMATION
  Report Type: Spontaneous
  Country: EU (occurrence: EU)
  Receive Date: 20241025
  Receipt Date: 20250803
  Transmission Date: 20251020
  Serious: Yes (Other)
  Sender: ALEXION PHARMACEUTICALS
  Company Number: EU-ASTRAZENECA-23CR0000008

PATIENT

DRUGS (1)
  1. TAGRISSO [Suspect]
     Active Substance: OSIMERTINIB

REACTIONS (8)
  - Deep vein thrombosis [Unknown]
  - Disease progression [Unknown]
  - Pain in extremity [Unknown]
  - Chest pain [Unknown]
  - Musculoskeletal pain [Unknown]
  - Decreased appetite [Unknown]
  - Weight decreased [Unknown]
  - Renal cyst [Unknown]

NARRATIVE: CASE EVENT DATE: 20220801
